FAERS Safety Report 8530230-9 (Version None)
Quarter: 2012Q3

REPORT INFORMATION
  Report Type: 
  Country: None (occurrence: None)
  Receive Date: 20120723
  Receipt Date: 20120720
  Transmission Date: 20120928
  Serious: Yes (Death, Hospitalization, Other)
  Sender: FDA-Public Use
  Company Number: PHHY2012US062401

PATIENT
  Age: 32 Year
  Sex: Female

DRUGS (2)
  1. GLEEVEC [Suspect]
     Indication: CHORDOMA
     Dosage: 400 MG, DAILY
  2. GLEEVEC [Suspect]
     Dosage: 800 MG, DAILY

REACTIONS (16)
  - DRUG INEFFECTIVE [None]
  - NEOPLASM PROGRESSION [None]
  - DEATH [None]
  - NEOPLASM MALIGNANT [None]
  - VASOSPASM [None]
  - PNEUMOCEPHALUS [None]
  - HEADACHE [None]
  - INTRACRANIAL HYPOTENSION [None]
  - MENINGITIS BACTERIAL [None]
  - MENINGITIS FUNGAL [None]
  - BRAIN STEM ISCHAEMIA [None]
  - INTRAVENTRICULAR HAEMORRHAGE [None]
  - LOCKED-IN SYNDROME [None]
  - MENTAL IMPAIRMENT [None]
  - HYDROCEPHALUS [None]
  - VOMITING [None]
